FAERS Safety Report 21519937 (Version 1)
Quarter: 2022Q4

REPORT INFORMATION
  Report Type: Spontaneous
  Country: SE (occurrence: SE)
  Receive Date: 20221028
  Receipt Date: 20221028
  Transmission Date: 20230112
  Serious: Yes (Other)
  Sender: FDA-Public Use
  Company Number: None

PATIENT
  Age: 73 Year
  Sex: Female

DRUGS (1)
  1. DYMISTA [Suspect]
     Active Substance: AZELASTINE HYDROCHLORIDE\FLUTICASONE PROPIONATE
     Indication: Sinusitis
     Dosage: 125 MIKROGRAM + 50 MIKROGRAM SPRAYING 1 SPRAY
     Route: 045
     Dates: start: 20210406, end: 20210406

REACTIONS (1)
  - Blindness transient [Recovered/Resolved]
